FAERS Safety Report 8119437-2 (Version None)
Quarter: 2012Q1

REPORT INFORMATION
  Report Type: 
  Country: None (occurrence: None)
  Receive Date: 20120207
  Receipt Date: 20120124
  Transmission Date: 20120608
  Serious: Yes (Disabling)
  Sender: FDA-Public Use
  Company Number: US-MYLANLABS-2012S1002576

PATIENT
  Age: 14 Month
  Sex: Female

DRUGS (3)
  1. HEPARIN [Concomitant]
  2. ASPIRIN [Concomitant]
  3. MELPHALAN HYDROCHLORIDE [Suspect]
     Indication: RETINOBLASTOMA
     Route: 013

REACTIONS (7)
  - RETINOBLASTOMA [None]
  - EYELID OEDEMA [None]
  - CHOROIDAL DYSTROPHY [None]
  - RENAL ARTERY OCCLUSION [None]
  - EYE EXCISION [None]
  - EYELID PTOSIS [None]
  - RETINAL PIGMENT EPITHELIOPATHY [None]
